FAERS Safety Report 10676561 (Version 1)
Quarter: 2014Q4

REPORT INFORMATION
  Report Type: Spontaneous
  Country: US (occurrence: None)
  Receive Date: 20141223
  Receipt Date: 20141223
  Transmission Date: 20150529
  Serious: No
  Sender: FDA-Public Use
  Company Number: None

PATIENT
  Age: 58 Year
  Sex: Female
  Weight: 90.72 kg

DRUGS (1)
  1. BELVIQ [Suspect]
     Active Substance: LORCASERIN HYDROCHLORIDE
     Indication: WEIGHT DECREASED
     Route: 048
     Dates: start: 20141122, end: 20141128

REACTIONS (4)
  - Dysgraphia [None]
  - Coordination abnormal [None]
  - Sluggishness [None]
  - Speech disorder [None]

NARRATIVE: CASE EVENT DATE: 20141122
